FAERS Safety Report 5538425-3 (Version None)
Quarter: 2007Q4

REPORT INFORMATION
  Report Type: 
  Country: None (occurrence: None)
  Receive Date: 20071205
  Receipt Date: 20071121
  Transmission Date: 20080405
  Serious: Yes (Hospitalization)
  Sender: FDA-Public Use
  Company Number: 060013L07JPN

PATIENT
  Age: 20 Year
  Sex: Female

DRUGS (2)
  1. CLOMIPHENE CITRATE [Suspect]
     Indication: OVULATION INDUCTION
  2. SEX HORMONES AND MODULATORS OF THE GENI. SYS [Concomitant]

REACTIONS (7)
  - BENIGN HYDATIDIFORM MOLE [None]
  - DRUG EXPOSURE DURING PREGNANCY [None]
  - HAEMORRHAGE [None]
  - PREMATURE LABOUR [None]
  - SHORTENED CERVIX [None]
  - THREATENED LABOUR [None]
  - UTERINE SPASM [None]
